FAERS Safety Report 25747857 (Version 2)
Quarter: 2025Q3

REPORT INFORMATION
  Report Type: Spontaneous
  Country: EU (occurrence: EU)
  Receive Date: 20250901
  Receipt Date: 20250912
  Transmission Date: 20251020
  Serious: Yes (Death, Other)
  Sender: GILEAD
  Company Number: EU-GILEAD-2025-0726008

PATIENT
  Age: 87 Year
  Sex: Male

DRUGS (2)
  1. TECARTUS [Suspect]
     Active Substance: BREXUCABTAGENE AUTOLEUCEL
     Indication: Mantle cell lymphoma
     Route: 065
  2. CORTISONE [Concomitant]
     Active Substance: CORTISONE

REACTIONS (3)
  - Death [Fatal]
  - General physical health deterioration [Unknown]
  - Drug effect less than expected [Unknown]

NARRATIVE: CASE EVENT DATE: 20250826
